FAERS Safety Report 5751885-8 (Version None)
Quarter: 2008Q2

REPORT INFORMATION
  Report Type: 
  Country: None (occurrence: None)
  Receive Date: 20080527
  Receipt Date: 20080506
  Transmission Date: 20081010
  Serious: Yes (Other)
  Sender: FDA-Public Use
  Company Number: 2008AL003630

PATIENT
  Sex: Male

DRUGS (1)
  1. DIGOXIN                  (AMIDE) [Suspect]

REACTIONS (13)
  - ANXIETY [None]
  - ASTHENIA [None]
  - BLOOD GLUCOSE ABNORMAL [None]
  - CARDIOACTIVE DRUG LEVEL INCREASED [None]
  - DIZZINESS [None]
  - DRY SKIN [None]
  - FATIGUE [None]
  - HYPERSOMNIA [None]
  - HYPOTENSION [None]
  - MALAISE [None]
  - PHOTOPSIA [None]
  - VITREOUS DETACHMENT [None]
  - WEIGHT DECREASED [None]
